FAERS Safety Report 17318488 (Version 1)
Quarter: 2020Q1

REPORT INFORMATION
  Report Type: Report from Study
  Country: US (occurrence: US)
  Receive Date: 20200124
  Receipt Date: 20200124
  Transmission Date: 20200409
  Serious: Yes (Death)
  Sender: FDA-Public Use
  Company Number: US-ACTELION-A-NJ2019-197474

PATIENT
  Age: 80 Year
  Sex: Female
  Weight: 46.71 kg

DRUGS (6)
  1. XARELTO [Concomitant]
     Active Substance: RIVAROXABAN
  2. ADEMPAS [Concomitant]
     Active Substance: RIOCIGUAT
  3. UPTRAVI [Suspect]
     Active Substance: SELEXIPAG
     Indication: PULMONARY ARTERIAL HYPERTENSION
     Dosage: 400 MCG, BID
     Route: 048
  4. UPTRAVI [Suspect]
     Active Substance: SELEXIPAG
     Dosage: UNK
     Route: 048
  5. LETAIRIS [Concomitant]
     Active Substance: AMBRISENTAN
  6. OXYGEN. [Concomitant]
     Active Substance: OXYGEN

REACTIONS (6)
  - Epistaxis [Unknown]
  - Retching [Unknown]
  - Abdominal discomfort [Unknown]
  - Death [Fatal]
  - Nausea [Unknown]
  - Hospice care [Unknown]

NARRATIVE: CASE EVENT DATE: 20191226
